FAERS Safety Report 4519772-0 (Version None)
Quarter: 2004Q4

REPORT INFORMATION
  Report Type: 
  Country: None (occurrence: None)
  Receive Date: 20041207
  Receipt Date: 20040804
  Transmission Date: 20050328
  Serious: Yes (Other)
  Sender: FDA-Public Use
  Company Number: PHBS2004JP10396

PATIENT
  Age: 79 Year
  Sex: Female

DRUGS (5)
  1. PARLODEL [Suspect]
     Indication: PARKINSON'S DISEASE
     Dosage: 7.5 MG/D
     Route: 048
     Dates: start: 20020101
  2. MENESIT [Concomitant]
     Dosage: 3 DF, QD
     Route: 048
  3. DIBASIC CALCIUM PHOSPHATE [Concomitant]
     Dosage: 2 G/D
     Route: 048
  4. NEUROTROPIN [Concomitant]
     Dosage: 12 IU/D
     Route: 048
  5. PRORENAL [Suspect]
     Dosage: 10 UG/DAY
     Route: 048

REACTIONS (4)
  - DYSPNOEA [None]
  - RESPIRATORY DISORDER [None]
  - TACHYCARDIA [None]
  - WHEEZING [None]
